FAERS Safety Report 22195804 (Version 3)
Quarter: 2024Q2

REPORT INFORMATION
  Report Type: Spontaneous
  Country: US (occurrence: US)
  Receive Date: 20230411
  Receipt Date: 20240412
  Transmission Date: 20240716
  Serious: Yes (Other)
  Sender: FDA-Public Use
  Company Number: US-ASTELLAS-2022US017645

PATIENT
  Sex: Male

DRUGS (5)
  1. PROGRAF [Suspect]
     Active Substance: TACROLIMUS
     Indication: Liver transplant
     Dosage: UNK UNK, UNKNOWN FREQ.
     Route: 065
     Dates: end: 2008
  2. RAPAMUNE [Concomitant]
     Active Substance: SIROLIMUS
     Indication: Liver transplant
     Route: 048
  3. TRULICITY [Concomitant]
     Active Substance: DULAGLUTIDE
     Indication: Glycosylated haemoglobin
     Dosage: UNK UNK, UNKNOWN FREQ.
     Route: 065
  4. TRULICITY [Concomitant]
     Active Substance: DULAGLUTIDE
     Indication: Blood glucose abnormal
  5. TRULICITY [Concomitant]
     Active Substance: DULAGLUTIDE
     Indication: Weight decreased

REACTIONS (1)
  - Renal failure [Recovering/Resolving]
